FAERS Safety Report 18935669 (Version 1)
Quarter: 2021Q1

REPORT INFORMATION
  Report Type: Spontaneous
  Country: US (occurrence: US)
  Receive Date: 20210225
  Receipt Date: 20210225
  Transmission Date: 20210420
  Serious: No
  Sender: FDA-Public Use
  Company Number: US-STRIDES ARCOLAB LIMITED-2021SP000532

PATIENT
  Age: 38 Year
  Sex: Female

DRUGS (6)
  1. CINACALCET. [Suspect]
     Active Substance: CINACALCET
     Indication: HUNGRY BONE SYNDROME
     Dosage: UNK
     Route: 065
  2. CALCIUM ACETATE. [Concomitant]
     Active Substance: CALCIUM ACETATE
     Indication: HUNGRY BONE SYNDROME
     Dosage: 2001 MILLIGRAM, TID
     Route: 065
  3. CALCIUM CARBONATE. [Concomitant]
     Active Substance: CALCIUM CARBONATE
     Indication: HUNGRY BONE SYNDROME
     Dosage: 1250 MILLIGRAM, TID
     Route: 065
  4. CALCIUM CARBONATE. [Concomitant]
     Active Substance: CALCIUM CARBONATE
     Indication: HYPERCALCAEMIA
  5. CALCIUM ACETATE. [Concomitant]
     Active Substance: CALCIUM ACETATE
     Indication: HYPERCALCAEMIA
  6. CINACALCET. [Suspect]
     Active Substance: CINACALCET
     Indication: HYPERCALCAEMIA

REACTIONS (1)
  - Hypocalcaemia [Unknown]
